FAERS Safety Report 19886619 (Version 1)
Quarter: 2021Q3

REPORT INFORMATION
  Report Type: Report from Study
  Country: CN (occurrence: CN)
  Receive Date: 20210927
  Receipt Date: 20210927
  Transmission Date: 20211014
  Serious: Yes (Death, Hospitalization)
  Sender: FDA-Public Use
  Company Number: CN-PFIZER INC-202101237801

PATIENT
  Age: 47 Year
  Sex: Male

DRUGS (9)
  1. HUMAN ALBUMIN [Suspect]
     Active Substance: ALBUMIN HUMAN
     Indication: COVID-19
     Dosage: 30 G, 1X/DAY
     Dates: start: 2020, end: 2020
  2. HUMAN IMMUNOGLOBULIN (IMMUNOGLOBULIN HUMAN NORMAL) [Suspect]
     Active Substance: HUMAN IMMUNOGLOBULIN G
     Indication: COVID-19
     Dosage: 10 G, SINGLE
     Dates: start: 2020, end: 2020
  3. TOCILIZUMAB. [Suspect]
     Active Substance: TOCILIZUMAB
     Indication: COVID-19
     Dosage: 672 MG(400 + 272 MG)
     Dates: start: 20200315, end: 20200315
  4. RITUXIMAB. [Concomitant]
     Active Substance: RITUXIMAB
     Indication: CHEMOTHERAPY
     Dosage: UNK
  5. METHYLPREDNISOLONE SODIUM SUCCINATE. [Suspect]
     Active Substance: METHYLPREDNISOLONE SODIUM SUCCINATE
     Indication: COVID-19
     Dosage: 40 MG, 1X/DAY
     Dates: start: 2020, end: 2020
  6. ENTECAVIR. [Concomitant]
     Active Substance: ENTECAVIR
     Dosage: UNK
  7. ARBIDOL HYDROCHLORIDE [Suspect]
     Active Substance: UMIFENOVIR HYDROCHLORIDE
     Indication: COVID-19
     Dosage: UNK
     Dates: start: 2020, end: 2020
  8. MEROPENEM. [Suspect]
     Active Substance: MEROPENEM
     Indication: COVID-19
     Dosage: 2 G, 3X/DAY
     Dates: start: 2020, end: 2020
  9. VANCOMYCIN [Suspect]
     Active Substance: VANCOMYCIN
     Indication: COVID-19
     Dosage: 0.5 G, 2X/DAY
     Dates: start: 2020, end: 2020

REACTIONS (1)
  - Drug ineffective [Fatal]

NARRATIVE: CASE EVENT DATE: 2020
